FAERS Safety Report 8267699 (Version 2)
Quarter: 2013Q2

REPORT INFORMATION
  Report Type: Spontaneous
  Country: US (occurrence: None)
  Receive Date: 20111122
  Receipt Date: 20120703
  Transmission Date: 20140414
  Serious: Yes (Other)
  Sender: FDA-Public Use
  Company Number: PHEH2011US01951

PATIENT
  Age: 53 Year
  Sex: Female

DRUGS (13)
  1. GILENYA [Suspect]
     Indication: MULTIPLE SCLEROSIS
     Dosage: 0.5 MG, QD, ORAL
     Route: 048
     Dates: start: 20110816, end: 20110819
  2. TIZANIDINE HYDROCHLORIDE [Concomitant]
  3. HYDROCHLOROTHIAZIDE [Concomitant]
  4. SIMVASTATIN [Concomitant]
  5. ATENOLOL [Concomitant]
  6. VITAMIN D3 (COLECALCIFEROL) [Concomitant]
  7. VITAMIN B12 (CYANOCOBALAMIN) [Concomitant]
  8. B COMPLEX (NICOTINAMIDE, PYRIDOXINE HYDROCHLORIDE, RIBOFLAVIN, THIAMINE HYDROCHLORIDE) [Concomitant]
  9. PRILOSEC (OMEPRAZOLE) [Concomitant]
  10. POTASSIUM (POTASSIUM) [Concomitant]
  11. ELAVIL (AMITRIPTYLINE HYDROCHLORIDE) [Concomitant]
  12. ASA (ACETYLSALICYLIC ACID) [Concomitant]
  13. COPAXONE (GLATIRAMER ACETATE) [Concomitant]

REACTIONS (4)
  - HEART RATE DECREASED [None]
  - HEART RATE IRREGULAR [None]
  - BLOOD PRESSURE INCREASED [None]
  - SOMNOLENCE [None]
